FAERS Safety Report 10997168 (Version 1)
Quarter: 2015Q2

REPORT INFORMATION
  Report Type: Spontaneous
  Country: US (occurrence: None)
  Receive Date: 20150407
  Receipt Date: 20150407
  Transmission Date: 20150821
  Serious: No
  Sender: FDA-Public Use
  Company Number: None

PATIENT
  Age: 52 Year
  Sex: Male
  Weight: 124.74 kg

DRUGS (12)
  1. MILK THISTLE [Concomitant]
     Active Substance: MILK THISTLE
  2. BYSTOLIC [Concomitant]
     Active Substance: NEBIVOLOL HYDROCHLORIDE
  3. VITAMIN E [Concomitant]
     Active Substance: .ALPHA.-TOCOPHEROL
  4. OTREXUP .4 ML [Concomitant]
  5. BUTRAN PATCH 10MG [Concomitant]
  6. GARLIC. [Concomitant]
     Active Substance: GARLIC
  7. CYMBALTA [Suspect]
     Active Substance: DULOXETINE HYDROCHLORIDE
     Indication: PAIN
     Dosage: 4 PILLS
     Route: 048
  8. CYMBALTA [Suspect]
     Active Substance: DULOXETINE HYDROCHLORIDE
     Indication: DEPRESSION
     Dosage: 4 PILLS
     Route: 048
  9. FOLIC ACID 1MG [Concomitant]
  10. ETODOLAC 400 MG [Concomitant]
  11. VITAMIN D [Concomitant]
     Active Substance: CHOLECALCIFEROL
  12. FISH OIL [Concomitant]
     Active Substance: FISH OIL

REACTIONS (6)
  - Confusional state [None]
  - Paraesthesia [None]
  - Nightmare [None]
  - Headache [None]
  - Dizziness [None]
  - Nausea [None]

NARRATIVE: CASE EVENT DATE: 20150402
